FAERS Safety Report 6998595-7 (Version None)
Quarter: 2010Q3

REPORT INFORMATION
  Report Type: 
  Country: None (occurrence: None)
  Receive Date: 20100920
  Receipt Date: 20100701
  Transmission Date: 20110219
  Serious: No
  Sender: FDA-Public Use
  Company Number: US-ASTRAZENECA-2007UW27734

PATIENT
  Age: 707 Month
  Sex: Female
  Weight: 133.4 kg

DRUGS (23)
  1. SEROQUEL [Suspect]
     Indication: DEPRESSION
     Dosage: 25 TO 100 MG
     Route: 048
     Dates: start: 19990401, end: 20060601
  2. SEROQUEL [Suspect]
     Indication: BIPOLAR DISORDER
     Dosage: 25 TO 100 MG
     Route: 048
     Dates: start: 19990401, end: 20060601
  3. SEROQUEL [Suspect]
     Indication: SCHIZOPHRENIA
     Dosage: 25 TO 100 MG
     Route: 048
     Dates: start: 19990401, end: 20060601
  4. SEROQUEL [Suspect]
     Dosage: 25-50 MG
     Route: 048
     Dates: start: 20040301
  5. SEROQUEL [Suspect]
     Dosage: 25-50 MG
     Route: 048
     Dates: start: 20040301
  6. SEROQUEL [Suspect]
     Dosage: 25-50 MG
     Route: 048
     Dates: start: 20040301
  7. HALDOL [Concomitant]
     Dates: start: 20040101
  8. LEXAPRO [Concomitant]
  9. MOTRIN [Concomitant]
  10. NIFEDICAL [Concomitant]
  11. CHANTIX [Concomitant]
  12. METFORMIN [Concomitant]
  13. SYNTHROID [Concomitant]
  14. DYAZIDE [Concomitant]
  15. LISINOPRIL [Concomitant]
  16. DEPAKOTE [Concomitant]
  17. RISPERDAL [Concomitant]
     Indication: DEPRESSION
     Dates: start: 19990501, end: 20020401
  18. RISPERDAL [Concomitant]
     Indication: BIPOLAR DISORDER
     Dates: start: 19990501, end: 20020401
  19. RISPERDAL [Concomitant]
     Indication: SCHIZOPHRENIA
     Dates: start: 19990501, end: 20020401
  20. ZYPREXA [Concomitant]
     Indication: DEPRESSION
     Dosage: 5 MG TO 10 MG
     Dates: start: 19981101, end: 20010601
  21. ZYPREXA [Concomitant]
     Indication: BIPOLAR DISORDER
     Dosage: 5 MG TO 10 MG
     Dates: start: 19981101, end: 20010601
  22. ZYPREXA [Concomitant]
     Indication: SCHIZOPHRENIA
     Dosage: 5 MG TO 10 MG
     Dates: start: 19981101, end: 20010601
  23. LITHIUM CARBONATE [Concomitant]

REACTIONS (2)
  - OBESITY [None]
  - TYPE 2 DIABETES MELLITUS [None]
